FAERS Safety Report 6671763-X (Version None)
Quarter: 2010Q2

REPORT INFORMATION
  Report Type: 
  Country: None (occurrence: None)
  Receive Date: 20100406
  Receipt Date: 20100406
  Transmission Date: 20101027
  Serious: No
  Sender: FDA-Public Use
  Company Number: None

PATIENT
  Age: 28 Year
  Sex: Female
  Weight: 83.9154 kg

DRUGS (3)
  1. CYMBALTA [Suspect]
     Indication: ANXIETY
     Dosage: 30 MG 1 TABLET PER DAY PO
     Route: 048
     Dates: start: 20090701, end: 20100329
  2. CYMBALTA [Suspect]
     Indication: DEPRESSION
     Dosage: 30 MG 1 TABLET PER DAY PO
     Route: 048
     Dates: start: 20090701, end: 20100329
  3. CYMBALTA [Suspect]

REACTIONS (1)
  - DRUG WITHDRAWAL SYNDROME [None]
